FAERS Safety Report 13354959 (Version 3)
Quarter: 2017Q2

REPORT INFORMATION
  Report Type: Spontaneous
  Country: US (occurrence: US)
  Receive Date: 20170321
  Receipt Date: 20170505
  Transmission Date: 20170830
  Serious: Yes (Other)
  Sender: FDA-Public Use
  Company Number: US-009507513-1702USA011124

PATIENT
  Age: 21 Year
  Sex: Female
  Weight: 73.75 kg

DRUGS (1)
  1. NEXPLANON [Suspect]
     Active Substance: ETONOGESTREL
     Indication: CONTRACEPTION
     Dosage: 1 DF, UNK
     Route: 059
     Dates: start: 20150720, end: 20161215

REACTIONS (5)
  - General anaesthesia [Recovered/Resolved]
  - Weight increased [Unknown]
  - Complication of device removal [Recovered/Resolved]
  - Surgery [Recovered/Resolved]
  - Complication associated with device [Recovered/Resolved]

NARRATIVE: CASE EVENT DATE: 20161215
